FAERS Safety Report 17255099 (Version 2)
Quarter: 2020Q1

REPORT INFORMATION
  Report Type: Report from Study
  Country: IL (occurrence: IL)
  Receive Date: 20200109
  Receipt Date: 20200122
  Transmission Date: 20200409
  Serious: Yes (Hospitalization)
  Sender: FDA-Public Use
  Company Number: IL-BRISTOL-MYERS SQUIBB COMPANY-BMS-2020-000992

PATIENT
  Age: 80 Year
  Sex: Male

DRUGS (19)
  1. COSOPT [Concomitant]
     Active Substance: DORZOLAMIDE HYDROCHLORIDE\TIMOLOL MALEATE
     Indication: PAIN
     Dosage: UNK, QD
     Route: 048
     Dates: start: 2008
  2. DOXYLIN [DOXYCYCLINE CALCIUM] [Concomitant]
     Indication: COUGH
     Dosage: 100 MILLIGRAM, BID
     Route: 048
     Dates: start: 20200114
  3. LAXADIN [Concomitant]
     Active Substance: BISACODYL
     Indication: CONSTIPATION
     Dosage: 5 MILLIGRAM, BID
     Route: 048
     Dates: start: 20200114
  4. XALATAN [Concomitant]
     Active Substance: LATANOPROST
     Indication: PRODUCT USED FOR UNKNOWN INDICATION
     Dosage: 1 DROP, QD
     Route: 065
     Dates: start: 2008
  5. FENTA [Concomitant]
     Indication: PAIN
     Dosage: PATCH
     Route: 050
     Dates: start: 2016
  6. ZODORM [ZOLPIDEM] [Concomitant]
     Indication: INSOMNIA
     Dosage: 10 MILLIGRAM, QD
     Route: 048
     Dates: start: 20200114
  7. AUGUMENTIN ES [Concomitant]
     Indication: ACARODERMATITIS
     Dosage: 875 MILLIGRAM, BID
     Route: 048
     Dates: start: 20200109
  8. IPILIMUMAB [Suspect]
     Active Substance: IPILIMUMAB
     Indication: KAPOSI^S SARCOMA
     Dosage: 1 MILLIGRAM/KILOGRAM
     Route: 042
     Dates: start: 20191127
  9. ENSURE [NUTRIENTS NOS] [Concomitant]
     Indication: DECREASED APPETITE
     Dosage: 220 MILLILITER, QD
     Route: 048
     Dates: start: 20200114
  10. NIVOLUMAB [Suspect]
     Active Substance: NIVOLUMAB
     Indication: KAPOSI^S SARCOMA
     Dosage: 240 MILLIGRAM
     Route: 042
     Dates: start: 20191127
  11. COUMADIN [Concomitant]
     Active Substance: WARFARIN SODIUM
     Indication: ARRHYTHMIA
     Dosage: UNK UNK, QD
     Route: 048
     Dates: start: 1995
  12. TAMSULOSIN [TAMSULOSIN HYDROCHLORIDE] [Concomitant]
     Active Substance: TAMSULOSIN HYDROCHLORIDE
     Indication: BENIGN PROSTATIC HYPERPLASIA
     Dosage: UNK, QD
     Route: 048
     Dates: start: 2010
  13. REOLIN [Concomitant]
     Indication: COUGH
     Dosage: 200 MILLIGRAM, QD
     Route: 048
     Dates: start: 20200114
  14. APIXABAN [Concomitant]
     Active Substance: APIXABAN
     Indication: ARRHYTHMIA
     Dosage: 5 MILLIGRAM, BID
     Route: 048
     Dates: start: 20190312
  15. LYCLEAR [Concomitant]
     Indication: ACARODERMATITIS
     Dosage: UNK, QD
     Route: 061
     Dates: start: 20200114
  16. TRIDEMIN [Concomitant]
     Active Substance: UBIDECARENONE
     Indication: PRURITUS
     Dosage: UNK, PRN
     Route: 061
     Dates: start: 20200101
  17. NERIDERM [Concomitant]
     Indication: PRURITUS
     Dosage: UNK, PRN
     Route: 061
     Dates: start: 20200101
  18. OXYCOD [OXYCODONE HYDROCHLORIDE] [Concomitant]
     Indication: PAIN
     Dosage: UNK, PRN
     Route: 048
     Dates: start: 2016
  19. XYLOVIT [Concomitant]
     Indication: NASOPHARYNGITIS
     Dosage: 3 DROPS
     Route: 045
     Dates: start: 20200114

REACTIONS (4)
  - Chills [Unknown]
  - Pain [Unknown]
  - Pyrexia [Unknown]
  - Productive cough [Unknown]

NARRATIVE: CASE EVENT DATE: 20200105
